FAERS Safety Report 21556142 (Version 1)
Quarter: 2022Q4

REPORT INFORMATION
  Report Type: Spontaneous
  Country: CN (occurrence: CN)
  Receive Date: 20221104
  Receipt Date: 20221104
  Transmission Date: 20230113
  Serious: Yes (Hospitalization)
  Sender: FDA-Public Use
  Company Number: CN-JNJFOC-20221052952

PATIENT
  Sex: Male
  Weight: 48 kg

DRUGS (2)
  1. STELARA [Suspect]
     Active Substance: USTEKINUMAB
     Indication: Crohn^s disease
     Dosage: 130MG/26ML/VIAL
     Route: 040
  2. STELARA [Suspect]
     Active Substance: USTEKINUMAB
     Route: 058

REACTIONS (4)
  - Asthma [Recovered/Resolved]
  - Hypersensitivity [Recovered/Resolved]
  - Infusion related reaction [Recovered/Resolved]
  - Off label use [Unknown]
